FAERS Safety Report 8969025 (Version 6)
Quarter: 2013Q2

REPORT INFORMATION
  Report Type: Spontaneous
  Country: CA (occurrence: CA)
  Receive Date: 20121217
  Receipt Date: 20130529
  Transmission Date: 20140414
  Serious: Yes (Other)
  Sender: FDA-Public Use
  Company Number: CA-ROCHE-1168542

PATIENT
  Age: 72 Year
  Sex: Male

DRUGS (10)
  1. XOLAIR [Suspect]
     Indication: ASTHMA
     Route: 058
     Dates: start: 20111208, end: 20121206
  2. ATACAND [Suspect]
     Indication: PRODUCT USED FOR UNKNOWN INDICATION
     Route: 065
  3. PREDNISONE [Concomitant]
     Route: 065
     Dates: start: 20061206
  4. SYMBICORT [Concomitant]
  5. RAMIPRIL [Concomitant]
  6. ELTROXIN [Concomitant]
  7. CRESTOR [Concomitant]
  8. OMNARIS [Concomitant]
  9. PLAVIX [Concomitant]
  10. OXYGEN [Concomitant]

REACTIONS (5)
  - Asthma [Not Recovered/Not Resolved]
  - Blood pressure decreased [Recovered/Resolved]
  - Increased upper airway secretion [Unknown]
  - Wheezing [Recovering/Resolving]
  - Drug ineffective [Unknown]
